FAERS Safety Report 6971889-7 (Version None)
Quarter: 2010Q3

REPORT INFORMATION
  Report Type: 
  Country: None (occurrence: None)
  Receive Date: 20100908
  Receipt Date: 20100831
  Transmission Date: 20110219
  Serious: Yes (Disabling)
  Sender: FDA-Public Use
  Company Number: US-SANOFI-AVENTIS-2010SA053165

PATIENT
  Age: 62 Year
  Sex: Female

DRUGS (2)
  1. LANTUS [Suspect]
     Indication: TYPE 2 DIABETES MELLITUS
     Dosage: 30-34 UNITS AT HS
     Route: 058
     Dates: start: 20080101
  2. HUMALOG [Concomitant]

REACTIONS (2)
  - FATIGUE [None]
  - NIGHT SWEATS [None]
